FAERS Safety Report 7910324-9 (Version None)
Quarter: 2011Q4

REPORT INFORMATION
  Report Type: 
  Country: None (occurrence: None)
  Receive Date: 20111111
  Receipt Date: 20111107
  Transmission Date: 20120403
  Serious: Yes (Death, Hospitalization)
  Sender: FDA-Public Use
  Company Number: US-ROCHE-1009778

PATIENT

DRUGS (1)
  1. ALTEPLASE [Suspect]
     Indication: SHOCK

REACTIONS (5)
  - RESPIRATORY FAILURE [None]
  - HYPOXIC-ISCHAEMIC ENCEPHALOPATHY [None]
  - PULSELESS ELECTRICAL ACTIVITY [None]
  - SEPSIS [None]
  - GASTROINTESTINAL HAEMORRHAGE [None]
